FAERS Safety Report 8777664 (Version 4)
Quarter: 2013Q1

REPORT INFORMATION
  Report Type: Spontaneous
  Country: US (occurrence: US)
  Receive Date: 20120911
  Receipt Date: 20130308
  Transmission Date: 20140127
  Serious: Yes (Hospitalization)
  Sender: FDA-Public Use
  Company Number: US-B.I. PHARMACEUTICALS,INC./RIDGEFIELD-2012-BP-21398BP

PATIENT
  Age: 82 Year
  Sex: Female
  Weight: 64.86 kg

DRUGS (9)
  1. PRADAXA [Suspect]
     Indication: ANTICOAGULANT THERAPY
     Dosage: 300 MG
     Route: 048
     Dates: start: 20110701, end: 20120727
  2. PRADAXA [Suspect]
     Indication: ATRIAL FIBRILLATION
  3. SOTALOL [Concomitant]
     Dates: start: 201107
  4. ENALAPRIL [Concomitant]
     Dosage: 20 MG
     Route: 048
     Dates: start: 1975
  5. HCT [Concomitant]
     Dosage: 25 MG
     Route: 048
     Dates: start: 2005
  6. LEVOTHYROXIN [Concomitant]
     Dosage: 75 MCG
     Route: 048
     Dates: start: 1955
  7. PAROXETINE [Concomitant]
     Dosage: 10 MG
     Route: 048
     Dates: start: 2003
  8. ATENOLOL [Concomitant]
     Dates: start: 201106
  9. DILTIAZEM [Concomitant]
     Dosage: 120 MG
     Route: 048

REACTIONS (1)
  - Gastrointestinal haemorrhage [Unknown]
